FAERS Safety Report 8631471 (Version 2)
Quarter: 2012Q4

REPORT INFORMATION
  Report Type: 
  Country: US (occurrence: US)
  Receive Date: 20120622
  Receipt Date: 20120921
  Transmission Date: 20130627
  Serious: Yes (Hospitalization, Other)
  Sender: FDA-Public Use
  Company Number: US-RB-041517-12

PATIENT
  Age: 50 Year
  Sex: Male

DRUGS (4)
  1. CIGARETTES [Suspect]
     Indication: NICOTINE DEPENDENCE
     Dosage: 20 daily
     Route: 065
     Dates: end: 201206
  2. CIGARETTES [Suspect]
     Dosage: 20 daily
     Route: 065
     Dates: start: 201207
  3. SUBOXONE FILM [Suspect]
     Indication: DRUG DEPENDENCE
     Dosage: 1/2 film twice daily - sublingual film
     Route: 060
     Dates: start: 2011, end: 201206
  4. SUBOXONE FILM [Suspect]
     Dosage: sublingual film - 1/2 film twice daily
     Route: 060
     Dates: start: 201206

REACTIONS (6)
  - Coronary artery occlusion [Recovered/Resolved]
  - Wrong technique in drug usage process [Not Recovered/Not Resolved]
  - Dizziness [Recovered/Resolved]
  - Anxiety [Not Recovered/Not Resolved]
  - Intentional drug misuse [Not Recovered/Not Resolved]
  - Incision site pain [Recovered/Resolved]
